FAERS Safety Report 8116610-4 (Version None)
Quarter: 2012Q1

REPORT INFORMATION
  Report Type: 
  Country: None (occurrence: None)
  Receive Date: 20120206
  Receipt Date: 20120123
  Transmission Date: 20120608
  Serious: Yes (Hospitalization, Other)
  Sender: FDA-Public Use
  Company Number: PHHY2012PL006590

PATIENT
  Age: 28 Year
  Sex: Female

DRUGS (6)
  1. CYCLOSPORINE [Suspect]
     Dosage: 5 MG/KG, DAILY
     Dates: start: 20081001, end: 20090401
  2. CYCLOSPORINE [Suspect]
     Dosage: 3 MG/KG,
  3. PREDNISONE [Concomitant]
  4. CYCLOSPORINE [Suspect]
     Indication: DERMATITIS ATOPIC
     Dosage: UNK UKN, UNK
  5. CYCLOSPORINE [Suspect]
     Dosage: 150 MG,
  6. CYCLOSPORINE [Suspect]
     Dosage: 2 MG/KG,

REACTIONS (14)
  - ESSENTIAL THROMBOCYTHAEMIA [None]
  - ORAL MUCOSA EROSION [None]
  - DISEASE RECURRENCE [None]
  - ANAEMIA [None]
  - DEEP VEIN THROMBOSIS [None]
  - LINEAR IGA DISEASE [None]
  - XERODERMA [None]
  - ERYTHEMA [None]
  - THROMBOSIS [None]
  - SKIN HYPERPIGMENTATION [None]
  - ORAL DISORDER [None]
  - DERMATITIS BULLOUS [None]
  - SKIN EXFOLIATION [None]
  - COLITIS ULCERATIVE [None]
